FAERS Safety Report 9157078 (Version 1)
Quarter: 2013Q1

REPORT INFORMATION
  Report Type: Spontaneous
  Country: US (occurrence: None)
  Receive Date: 20130212
  Receipt Date: 20130212
  Transmission Date: 20140127
  Serious: Yes (Hospitalization)
  Sender: FDA-Public Use
  Company Number: 13-16-3061

PATIENT
  Age: 70 Year
  Sex: Male
  Weight: 76.66 kg

DRUGS (20)
  1. IMIQUIMOD [Suspect]
     Indication: ACTINIC KERATOSIS
     Route: 061
     Dates: start: 20120925, end: 20121105
  2. PREVACID [Concomitant]
  3. ALBATEROL [Concomitant]
  4. SEREVENT [Concomitant]
  5. LANTUS INSULIN [Concomitant]
  6. HUMALOG INSULIN [Concomitant]
  7. BENICAIR [Concomitant]
  8. PRAVASTATIN [Concomitant]
  9. VIAGRA [Concomitant]
  10. NAONEX [Concomitant]
  11. BISACODYL [Concomitant]
  12. CALCIUM CITRATE+D [Concomitant]
  13. BETAMETHASONE [Concomitant]
  14. METROPOLOL [Concomitant]
  15. VICODIN [Concomitant]
  16. NITROSTAT [Concomitant]
  17. ATORVASTATIN [Concomitant]
  18. PERIDEX [Concomitant]
  19. HIBICLENS [Concomitant]
  20. BACTROBAN [Concomitant]

REACTIONS (3)
  - Coronary artery stenosis [None]
  - Coronary artery stenosis [None]
  - Coronary artery stenosis [None]
